FAERS Safety Report 18679499 (Version 1)
Quarter: 2020Q4

REPORT INFORMATION
  Report Type: Spontaneous
  Country: FR (occurrence: FR)
  Receive Date: 20201229
  Receipt Date: 20201229
  Transmission Date: 20210114
  Serious: Yes (Life-Threatening, Hospitalization, Other)
  Sender: FDA-Public Use
  Company Number: FR-STADA-213195

PATIENT
  Age: 58 Year

DRUGS (1)
  1. BUPRENORPHINE TABLET [Suspect]
     Active Substance: BUPRENORPHINE
     Indication: PRODUCT USED FOR UNKNOWN INDICATION
     Dosage: 70 TAB, QD
     Route: 060

REACTIONS (7)
  - Neurological symptom [Unknown]
  - Coma [Unknown]
  - Pneumonitis [Unknown]
  - Suicide attempt [Unknown]
  - Toxicity to various agents [Unknown]
  - Intentional overdose [Unknown]
  - Respiratory depression [Unknown]
